FAERS Safety Report 4594464-0 (Version None)
Quarter: 2005Q1

REPORT INFORMATION
  Report Type: 
  Country: None (occurrence: None)
  Receive Date: 20050301
  Receipt Date: 20040312
  Transmission Date: 20050727
  Serious: No
  Sender: FDA-Public Use
  Company Number: US-GLAXOSMITHKLINE-A0502574A

PATIENT
  Age: 44 Year
  Sex: Female

DRUGS (4)
  1. VALTREX [Suspect]
     Indication: PROPHYLAXIS
     Dosage: 500MG VARIABLE DOSE
     Route: 048
     Dates: start: 20040311, end: 20040311
  2. CYTOMEL [Concomitant]
  3. ATENOLOL [Concomitant]
  4. LEVOXYL [Concomitant]

REACTIONS (1)
  - ABDOMINAL PAIN [None]
